FAERS Safety Report 8324787-0 (Version None)
Quarter: 2012Q2

REPORT INFORMATION
  Report Type: 
  Country: None (occurrence: None)
  Receive Date: 20120501
  Receipt Date: 20120427
  Transmission Date: 20120825
  Serious: Yes (Other)
  Sender: FDA-Public Use
  Company Number: PHHY2011CA43217

PATIENT
  Sex: Female

DRUGS (2)
  1. ZOLEDRONOC ACID [Suspect]
     Indication: OSTEOPOROSIS
     Route: 042
     Dates: start: 20100223
  2. ZOLEDRONOC ACID [Suspect]
     Route: 042
     Dates: start: 20110628

REACTIONS (5)
  - COLITIS MICROSCOPIC [None]
  - ABDOMINAL DISTENSION [None]
  - CHEST PAIN [None]
  - DIARRHOEA [None]
  - GASTROOESOPHAGEAL REFLUX DISEASE [None]
